FAERS Safety Report 6057047-1 (Version None)
Quarter: 2009Q1

REPORT INFORMATION
  Report Type: 
  Country: None (occurrence: None)
  Receive Date: 20090129
  Receipt Date: 20090121
  Transmission Date: 20090719
  Serious: Yes (Other)
  Sender: FDA-Public Use
  Company Number: IT-TEVA-184298ISR

PATIENT
  Age: 74 Year
  Sex: Male

DRUGS (2)
  1. VINCRISTINE [Suspect]
  2. PROCARBAZINE [Suspect]

REACTIONS (2)
  - ACUTE RESPIRATORY FAILURE [None]
  - INTERSTITIAL LUNG DISEASE [None]
